FAERS Safety Report 13043937 (Version 3)
Quarter: 2016Q4

REPORT INFORMATION
  Report Type: Spontaneous
  Country: US (occurrence: US)
  Receive Date: 20161220
  Receipt Date: 20161229
  Transmission Date: 20170207
  Serious: Yes (Life-Threatening, Hospitalization, Other)
  Sender: FDA-Public Use
  Company Number: US-CONCORDIA PHARMACEUTICALS INC.-GSH201612-006421

PATIENT
  Age: 24 Year
  Sex: Female

DRUGS (6)
  1. AZATHIOPRINE. [Suspect]
     Active Substance: AZATHIOPRINE
     Indication: LUPUS NEPHRITIS
  2. AZATHIOPRINE. [Suspect]
     Active Substance: AZATHIOPRINE
     Indication: SYSTEMIC LUPUS ERYTHEMATOSUS
     Route: 065
  3. HYDROXYCHLOROQUINE [Suspect]
     Active Substance: HYDROXYCHLOROQUINE
     Indication: LUPUS NEPHRITIS
  4. PREDNISONE. [Suspect]
     Active Substance: PREDNISONE
     Indication: SYSTEMIC LUPUS ERYTHEMATOSUS
     Route: 065
  5. HYDROXYCHLOROQUINE [Suspect]
     Active Substance: HYDROXYCHLOROQUINE
     Indication: SYSTEMIC LUPUS ERYTHEMATOSUS
     Route: 065
  6. PREDNISONE. [Suspect]
     Active Substance: PREDNISONE
     Indication: LUPUS NEPHRITIS

REACTIONS (13)
  - Pneumonia cryptococcal [Unknown]
  - Cryptococcal fungaemia [Unknown]
  - Acute kidney injury [Unknown]
  - Lung infiltration [Unknown]
  - Bacteraemia [Unknown]
  - Dyspnoea [Unknown]
  - Pyrexia [Unknown]
  - Tachycardia [Unknown]
  - Productive cough [Unknown]
  - Tachypnoea [Unknown]
  - Pulmonary mass [Unknown]
  - Computerised tomogram thorax abnormal [Unknown]
  - Metabolic acidosis [Unknown]
